FAERS Safety Report 24786653 (Version 1)
Quarter: 2024Q4

REPORT INFORMATION
  Report Type: Report from Study
  Country: CA (occurrence: CA)
  Receive Date: 20241230
  Receipt Date: 20241230
  Transmission Date: 20250114
  Serious: Yes (Hospitalization)
  Sender: CSL BEHRING
  Company Number: CA-BEH-VIT-2024-02143

PATIENT
  Age: 32 Year
  Sex: Male

DRUGS (2)
  1. VELPHORO [Suspect]
     Active Substance: SUCROFERRIC OXYHYDROXIDE
     Indication: Blood phosphorus increased
     Dosage: 500,MG,TID
     Route: 048
     Dates: start: 20230406
  2. VELPHORO [Suspect]
     Active Substance: SUCROFERRIC OXYHYDROXIDE
     Dosage: 1000 MG, TID, WITH MEALS
     Route: 048
     Dates: start: 20240208

REACTIONS (2)
  - Hospitalisation [Unknown]
  - Product dose omission issue [Unknown]

NARRATIVE: CASE EVENT DATE: 20240304
